FAERS Safety Report 24965721 (Version 2)
Quarter: 2025Q1

REPORT INFORMATION
  Report Type: Spontaneous
  Country: CA (occurrence: CA)
  Receive Date: 20250213
  Receipt Date: 20250311
  Transmission Date: 20250409
  Serious: Yes (Hospitalization, Other)
  Sender: PFIZER
  Company Number: CA-PFIZER INC-PV202500011248

PATIENT
  Age: 10 Year
  Sex: Male

DRUGS (1)
  1. RAPAMUNE [Suspect]
     Active Substance: SIROLIMUS
     Indication: Juvenile angiofibroma
     Dosage: 2.7 MG, 1X/DAY FOR 30 DAYS
     Route: 048
     Dates: start: 20250206

REACTIONS (4)
  - Post procedural haemorrhage [Unknown]
  - Visual impairment [Unknown]
  - Off label use [Unknown]
  - Off label use [Unknown]
